FAERS Safety Report 16701910 (Version 1)
Quarter: 2019Q3

REPORT INFORMATION
  Report Type: Spontaneous
  Country: GB (occurrence: GB)
  Receive Date: 20190814
  Receipt Date: 20190814
  Transmission Date: 20191004
  Serious: Yes (Other)
  Sender: FDA-Public Use
  Company Number: GB-PFIZER INC-2019344873

PATIENT
  Age: 69 Year
  Sex: Female

DRUGS (2)
  1. SALAZOPYRIN [Suspect]
     Active Substance: SULFASALAZINE
     Dosage: UNK
  2. METHOTREXATE (METHOTREXATE SODIUM) [Suspect]
     Active Substance: METHOTREXATE SODIUM
     Dosage: UNK

REACTIONS (1)
  - Lymphoma [Unknown]
